FAERS Safety Report 17438795 (Version 9)
Quarter: 2021Q1

REPORT INFORMATION
  Report Type: Other
  Country: DE (occurrence: DE)
  Receive Date: 20200220
  Receipt Date: 20210203
  Transmission Date: 20210419
  Serious: Yes (Disabling, Other)
  Sender: FDA-Public Use
  Company Number: DE-ROCHE-2275299

PATIENT
  Age: 49 Year
  Sex: Female

DRUGS (14)
  1. BACLOFEN. [Concomitant]
     Active Substance: BACLOFEN
     Dosage: 1?1?1?2
  2. AMLODIPINE [Concomitant]
     Active Substance: AMLODIPINE BESYLATE
  3. OCREVUS [Suspect]
     Active Substance: OCRELIZUMAB
     Route: 042
     Dates: start: 20190221
  4. TORASEMIDE [Concomitant]
     Active Substance: TORSEMIDE
  5. METOPROLOL SUCCINATE. [Concomitant]
     Active Substance: METOPROLOL SUCCINATE
  6. CANDESARTAN. [Concomitant]
     Active Substance: CANDESARTAN
  7. OCREVUS [Suspect]
     Active Substance: OCRELIZUMAB
     Indication: SECONDARY PROGRESSIVE MULTIPLE SCLEROSIS
     Route: 042
     Dates: start: 20190207
  8. IBUPROFEN. [Concomitant]
     Active Substance: IBUPROFEN
     Dosage: AS REQUIRED?1?1?1
  9. OCREVUS [Suspect]
     Active Substance: OCRELIZUMAB
     Route: 042
     Dates: end: 20190808
  10. PANTOPRAZOL [Concomitant]
     Active Substance: PANTOPRAZOLE SODIUM
     Dosage: 1?0?0
  11. IBUPROFEN. [Concomitant]
     Active Substance: IBUPROFEN
  12. OXYCODONE [Concomitant]
     Active Substance: OXYCODONE
  13. FUROSEMID [Concomitant]
     Active Substance: FUROSEMIDE
  14. DEKRISTOL [Concomitant]
     Active Substance: CHOLECALCIFEROL

REACTIONS (13)
  - Contusion [Recovered/Resolved]
  - Constipation [Not Recovered/Not Resolved]
  - Constipation [Recovered/Resolved]
  - Intentional product use issue [Unknown]
  - Bedridden [Not Recovered/Not Resolved]
  - Fall [Unknown]
  - Muscle spasticity [Not Recovered/Not Resolved]
  - Gait disturbance [Not Recovered/Not Resolved]
  - Urinary retention [Not Recovered/Not Resolved]
  - Tooth loss [Recovered/Resolved]
  - Psoriasis [Not Recovered/Not Resolved]
  - Alopecia [Not Recovered/Not Resolved]
  - Off label use [Unknown]

NARRATIVE: CASE EVENT DATE: 20190207
